FAERS Safety Report 4333894-9 (Version None)
Quarter: 2004Q2

REPORT INFORMATION
  Report Type: 
  Country: None (occurrence: None)
  Receive Date: 20040402
  Receipt Date: 20030323
  Transmission Date: 20050107
  Serious: Yes (Death)
  Sender: FDA-Public Use
  Company Number: USA-2004-0013176

PATIENT
  Age: 45 Year
  Sex: Female

DRUGS (5)
  1. OXYCONTIN [Suspect]
     Indication: PAIN
     Dosage: 80 MG, Q8H, ORAL
     Route: 048
  2. PERCOCET [Concomitant]
  3. CELEXA [Concomitant]
  4. SKELAXIN [Concomitant]
  5. AMITRIPTYLINE HCL [Concomitant]

REACTIONS (1)
  - MYOCARDIAL INFARCTION [None]
